FAERS Safety Report 16027483 (Version 2)
Quarter: 2019Q2

REPORT INFORMATION
  Report Type: Report from Study
  Country: None (occurrence: US)
  Receive Date: 20190304
  Receipt Date: 20190418
  Transmission Date: 20190711
  Serious: Yes (Hospitalization)
  Sender: FDA-Public Use
  Company Number: US-ABBVIE-19K-163-2681547-00

PATIENT
  Age: 72 Year
  Sex: Male

DRUGS (1)
  1. HUMIRA [Suspect]
     Active Substance: ADALIMUMAB
     Indication: PSORIASIS
     Route: 058
     Dates: start: 20180522

REACTIONS (7)
  - Glomerular filtration rate decreased [Unknown]
  - Blood creatinine increased [Unknown]
  - Fungal skin infection [Unknown]
  - Cellulitis [Recovering/Resolving]
  - Sunburn [Recovering/Resolving]
  - Blood urea increased [Unknown]
  - Burns first degree [Unknown]

NARRATIVE: CASE EVENT DATE: 20190227
